FAERS Safety Report 25151596 (Version 1)
Quarter: 2025Q2

REPORT INFORMATION
  Report Type: Spontaneous
  Country: JP (occurrence: JP)
  Receive Date: 20250402
  Receipt Date: 20250402
  Transmission Date: 20250717
  Serious: Yes (Hospitalization)
  Sender: EISAI
  Company Number: JP-Eisai-EC-2025-186484

PATIENT
  Age: 32 Year
  Sex: Male

DRUGS (3)
  1. LEMBOREXANT [Suspect]
     Active Substance: LEMBOREXANT
     Indication: Insomnia
  2. LEMBOREXANT [Suspect]
     Active Substance: LEMBOREXANT
  3. VALPROIC ACID [Concomitant]
     Active Substance: VALPROIC ACID
     Indication: Product used for unknown indication

REACTIONS (3)
  - Altered state of consciousness [Unknown]
  - Intentional overdose [Unknown]
  - Suicidal ideation [Unknown]
